FAERS Safety Report 14367264 (Version 1)
Quarter: 2018Q1

REPORT INFORMATION
  Report Type: Spontaneous
  Country: US (occurrence: US)
  Receive Date: 20180109
  Receipt Date: 20180109
  Transmission Date: 20180509
  Serious: No
  Sender: FDA-Public Use
  Company Number: US-JNJFOC-20171232801

PATIENT
  Age: 8 Year
  Sex: Female
  Weight: 27.22 kg

DRUGS (3)
  1. CHILDRENS MOTRIN [Suspect]
     Active Substance: IBUPROFEN
     Route: 065
  2. CHILDRENS MOTRIN [Suspect]
     Active Substance: IBUPROFEN
     Indication: PYREXIA
     Dosage: 2.5 TEASPOONS
     Route: 065
     Dates: start: 20171218, end: 20171221
  3. TYLENOL CHILDREN^S ORAL SUSPENSION CHERRY DYE FREE [Concomitant]
     Indication: PYREXIA
     Dosage: 2 OR 3 TIMES
     Route: 065
     Dates: start: 20171219, end: 20171219

REACTIONS (1)
  - Hypersensitivity [Not Recovered/Not Resolved]

NARRATIVE: CASE EVENT DATE: 20171220
